FAERS Safety Report 7461020-6 (Version None)
Quarter: 2011Q2

REPORT INFORMATION
  Report Type: 
  Country: None (occurrence: None)
  Receive Date: 20110505
  Receipt Date: 20110427
  Transmission Date: 20111010
  Serious: Yes (Hospitalization, Other)
  Sender: FDA-Public Use
  Company Number: US-GENZYME-THYM-1002440

PATIENT

DRUGS (2)
  1. THYMOGLOBULIN [Suspect]
     Indication: PROPHYLAXIS AGAINST TRANSPLANT REJECTION
     Dosage: UNK
     Route: 042
     Dates: start: 20090101, end: 20090101
  2. MYCOPHENOLIC ACID [Suspect]
     Indication: PROPHYLAXIS AGAINST TRANSPLANT REJECTION
     Dosage: UNK
     Dates: start: 20090101, end: 20090101

REACTIONS (7)
  - HIV INFECTION [None]
  - PYREXIA [None]
  - OESOPHAGEAL CANDIDIASIS [None]
  - KIDNEY TRANSPLANT REJECTION [None]
  - ORAL CANDIDIASIS [None]
  - CD4 LYMPHOCYTES DECREASED [None]
  - RENAL FAILURE [None]
